FAERS Safety Report 6180718-3 (Version None)
Quarter: 2009Q2

REPORT INFORMATION
  Report Type: 
  Country: None (occurrence: None)
  Receive Date: 20090506
  Receipt Date: 20090428
  Transmission Date: 20091009
  Serious: Yes (Hospitalization)
  Sender: FDA-Public Use
  Company Number: US-ROCHE-630577

PATIENT
  Age: 72 Year
  Sex: Male

DRUGS (1)
  1. ROCEPHIN [Suspect]
     Indication: OSTEOMYELITIS
     Dosage: FROM: PREFILLED SYRINGE
     Route: 042

REACTIONS (3)
  - CONVULSION [None]
  - HEMIPARESIS [None]
  - HYPOTONIA [None]
